FAERS Safety Report 6938478-1 (Version None)
Quarter: 2010Q3

REPORT INFORMATION
  Report Type: 
  Country: None (occurrence: None)
  Receive Date: 20100824
  Receipt Date: 20100816
  Transmission Date: 20110219
  Serious: Yes (Disabling, Other)
  Sender: FDA-Public Use
  Company Number: US-B.I. PHARMACEUTICALS,INC./RIDGEFIELD-2010-BP-09259BP

PATIENT
  Age: 72 Year
  Sex: Female

DRUGS (4)
  1. MOBIC [Suspect]
     Dates: start: 20050101, end: 20050101
  2. SYNTHROID [Concomitant]
  3. VITAMIN D [Concomitant]
  4. CALCIUM [Concomitant]

REACTIONS (2)
  - MYDRIASIS [None]
  - RETINAL DETACHMENT [None]
